FAERS Safety Report 19372106 (Version 9)
Quarter: 2021Q3

REPORT INFORMATION
  Report Type: Spontaneous
  Country: JP (occurrence: JP)
  Receive Date: 20210604
  Receipt Date: 20210907
  Transmission Date: 20211014
  Serious: Yes (Death, Life-Threatening, Other)
  Sender: FDA-Public Use
  Company Number: JP-BRISTOL-MYERS SQUIBB COMPANY-BMS-2021-052228

PATIENT
  Age: 61 Year
  Sex: Male
  Weight: 56.8 kg

DRUGS (7)
  1. OPDIVO [Suspect]
     Active Substance: NIVOLUMAB
     Dosage: 360 MILLIGRAM, ONE TIME DOSE
     Route: 041
     Dates: start: 20210520, end: 20210520
  2. CARBOPLATIN. [Suspect]
     Active Substance: CARBOPLATIN
     Dosage: 740 MILLIGRAM, ONE TIME DOSE
     Route: 041
     Dates: start: 20210520, end: 20210520
  3. PACLITAXEL. [Suspect]
     Active Substance: PACLITAXEL
     Indication: NON-SMALL CELL LUNG CANCER RECURRENT
     Dosage: 338 MILLIGRAM, ONE TIME DOSE
     Route: 041
     Dates: start: 20210422, end: 20210422
  4. YERVOY [Suspect]
     Active Substance: IPILIMUMAB
     Indication: NON-SMALL CELL LUNG CANCER RECURRENT
     Dosage: 60 MILLIGRAM, ONE TIME DOSE
     Route: 041
     Dates: start: 20210422, end: 20210422
  5. OPDIVO [Suspect]
     Active Substance: NIVOLUMAB
     Indication: NON-SMALL CELL LUNG CANCER RECURRENT
     Dosage: 360 MILLIGRAM, ONE TIME DOSE
     Route: 041
     Dates: start: 20210422, end: 20210422
  6. CARBOPLATIN. [Suspect]
     Active Substance: CARBOPLATIN
     Indication: NON-SMALL CELL LUNG CANCER RECURRENT
     Dosage: 750 MILLIGRAM, ONE TIME DOSE
     Route: 041
     Dates: start: 20210422, end: 20210422
  7. PACLITAXEL. [Suspect]
     Active Substance: PACLITAXEL
     Dosage: 330 MILLIGRAM, ONE TIME DOSE
     Route: 041
     Dates: start: 20210520, end: 20210520

REACTIONS (12)
  - White blood cell count decreased [Fatal]
  - Multiple organ dysfunction syndrome [Fatal]
  - Respiratory failure [Fatal]
  - Shock [Fatal]
  - Pulmonary embolism [Fatal]
  - Ischaemic hepatitis [Fatal]
  - Thrombosis [Fatal]
  - Sepsis [Fatal]
  - Neutrophil count decreased [Fatal]
  - Infection [Fatal]
  - Cardio-respiratory arrest [Fatal]
  - Malignant neoplasm progression [Fatal]

NARRATIVE: CASE EVENT DATE: 20210503
